FAERS Safety Report 8762907 (Version 1)
Quarter: 2012Q4

REPORT INFORMATION
  Report Type: Spontaneous
  Country: US (occurrence: None)
  Receive Date: 20120830
  Receipt Date: 20120830
  Transmission Date: 20130627
  Serious: Yes (Other)
  Sender: FDA-Public Use
  Company Number: None

PATIENT
  Age: 60 Year
  Sex: Female
  Weight: 65.77 kg

DRUGS (1)
  1. ATORVASTATIN 20MG [Suspect]
     Indication: HYPERLIPIDEMIA
     Route: 048
     Dates: start: 20111120, end: 20111203

REACTIONS (1)
  - Myalgia [None]
